FAERS Safety Report 25944830 (Version 1)
Quarter: 2025Q4

REPORT INFORMATION
  Report Type: Spontaneous
  Country: US (occurrence: US)
  Receive Date: 20251021
  Receipt Date: 20251021
  Transmission Date: 20260117
  Serious: No
  Sender: Phathom Pharmaceuticals
  Company Number: US-PHATHOM PHARMACEUTICALS INC.-2025PHT02466

PATIENT
  Age: 76 Year
  Sex: Male
  Weight: 110.66 kg

DRUGS (4)
  1. VOQUEZNA [Suspect]
     Active Substance: VONOPRAZAN FUMARATE
     Indication: Gastrointestinal disorder
     Dosage: 20 MG, 1X/DAY
     Route: 048
     Dates: start: 20250811, end: 20250813
  2. HYDROCODONE [Concomitant]
     Active Substance: HYDROCODONE
  3. IRBESARTAN [Concomitant]
     Active Substance: IRBESARTAN
  4. AMLODIPINE BESYLATE [Concomitant]
     Active Substance: AMLODIPINE BESYLATE

REACTIONS (4)
  - Dysuria [Unknown]
  - Urine flow decreased [Not Recovered/Not Resolved]
  - Disorientation [Unknown]
  - Dizziness [Unknown]

NARRATIVE: CASE EVENT DATE: 20250801
